FAERS Safety Report 22605393 (Version 1)
Quarter: 2023Q2

REPORT INFORMATION
  Report Type: Spontaneous
  Country: US (occurrence: US)
  Receive Date: 20230615
  Receipt Date: 20230615
  Transmission Date: 20230721
  Serious: No
  Sender: FDA-Public Use
  Company Number: US-BRISTOL-MYERS SQUIBB COMPANY-2023-084401

PATIENT

DRUGS (7)
  1. NIVOLUMAB [Suspect]
     Active Substance: NIVOLUMAB
     Indication: Metastatic malignant melanoma
  2. MEKTOVI [Concomitant]
     Active Substance: BINIMETINIB
     Indication: Product used for unknown indication
     Dosage: 30-DAY SUPPLY
     Route: 048
  3. MEKTOVI [Concomitant]
     Active Substance: BINIMETINIB
     Dosage: TAKE 3 TABLETS BY MOUTH 2 TIMES A DAY. DO NOT TAKE FIRST DOSE UNTIL DIRECTED BY CLINICAL TEAM 540 TA
     Route: 048
     Dates: start: 20230526
  4. BRAFTOVI [Concomitant]
     Active Substance: ENCORAFENIB
     Indication: Product used for unknown indication
     Dosage: 30-DAY SUPPLY
     Route: 048
  5. BRAFTOVI [Concomitant]
     Active Substance: ENCORAFENIB
     Dosage: TAKE 6 CAPSULES BY MOUTH DAILY. DO NOT TAKE FIRST DOSE UNTIL DIRECTED BY CLINICAL TEAM 540 CAPSULE?E
     Route: 048
     Dates: start: 20230526
  6. ONDANSETRON [Concomitant]
     Active Substance: ONDANSETRON
     Indication: Nausea
     Dosage: TAKE 1 TABLET BY MOUTH DAILY AS NEEDED
     Route: 048
     Dates: start: 20230526
  7. ONDANSETRON [Concomitant]
     Active Substance: ONDANSETRON
     Indication: Vomiting

REACTIONS (1)
  - Back pain [Unknown]

NARRATIVE: CASE EVENT DATE: 20230505
